FAERS Safety Report 5589128-0 (Version None)
Quarter: 2007Q4

REPORT INFORMATION
  Report Type: 
  Country: None (occurrence: None)
  Receive Date: 20071212
  Receipt Date: 20070524
  Transmission Date: 20080405
  Serious: Yes (Other)
  Sender: FDA-Public Use
  Company Number: USA-2007-0027540

PATIENT
  Age: 41 Year
  Sex: Male

DRUGS (3)
  1. OXYCODONE HCL [Suspect]
     Indication: BACK PAIN
     Dosage: 40 MG, BID, ORAL
     Route: 048
  2. VICODIN [Concomitant]
  3. ALPRAZOLAM [Concomitant]

REACTIONS (5)
  - DRUG INEFFECTIVE [None]
  - INADEQUATE ANALGESIA [None]
  - INTENTIONAL DRUG MISUSE [None]
  - PAIN [None]
  - WRONG TECHNIQUE IN DRUG USAGE PROCESS [None]
